FAERS Safety Report 7753699-6 (Version None)
Quarter: 2011Q3

REPORT INFORMATION
  Report Type: 
  Country: None (occurrence: None)
  Receive Date: 20110915
  Receipt Date: 20110915
  Transmission Date: 20111222
  Serious: Yes (Hospitalization, Other)
  Sender: FDA-Public Use
  Company Number: None

PATIENT
  Sex: Female

DRUGS (1)
  1. CLARITHROMYCIN [Suspect]
     Indication: SINUS DISORDER
     Dosage: 1 TABLET
     Route: 048
     Dates: start: 20110621, end: 20110626

REACTIONS (7)
  - HALLUCINATION [None]
  - EXPOSURE TO CONTAMINATED AIR [None]
  - CONTUSION [None]
  - PANIC ATTACK [None]
  - DYSPNOEA [None]
  - CONFUSIONAL STATE [None]
  - DEHYDRATION [None]
